FAERS Safety Report 11683318 (Version 3)
Quarter: 2016Q1

REPORT INFORMATION
  Report Type: Spontaneous
  Country: US (occurrence: US)
  Receive Date: 20151029
  Receipt Date: 20160210
  Transmission Date: 20160525
  Serious: No
  Sender: FDA-Public Use
  Company Number: US-GLAXOSMITHKLINE-US2015153808

PATIENT
  Sex: Male

DRUGS (2)
  1. ADVAIR DISKUS [Suspect]
     Active Substance: FLUTICASONE PROPIONATE\SALMETEROL XINAFOATE
     Indication: CHRONIC OBSTRUCTIVE PULMONARY DISEASE
     Dosage: 1 PUFF(S), BID
     Route: 055
  2. PROAIR HFA [Concomitant]
     Active Substance: ALBUTEROL SULFATE

REACTIONS (3)
  - Product quality issue [Unknown]
  - Drug ineffective [Not Recovered/Not Resolved]
  - Dyspnoea [Not Recovered/Not Resolved]
